FAERS Safety Report 5497808-0 (Version None)
Quarter: 2007Q4

REPORT INFORMATION
  Report Type: 
  Country: None (occurrence: None)
  Receive Date: 20071025
  Receipt Date: 20070305
  Transmission Date: 20080405
  Serious: No
  Sender: FDA-Public Use
  Company Number: A0641881A

PATIENT
  Age: 76 Year
  Sex: Female

DRUGS (5)
  1. ADVAIR DISKUS 100/50 [Suspect]
     Indication: EMPHYSEMA
     Dosage: 1PUFF UNKNOWN
     Route: 055
     Dates: end: 20070201
  2. ALBUTEROL [Concomitant]
  3. LISINOPRIL [Concomitant]
  4. UNKNOWN MEDICATION [Concomitant]
  5. PREDNISONE [Concomitant]

REACTIONS (4)
  - APHONIA [None]
  - CANDIDIASIS [None]
  - DRUG ADMINISTRATION ERROR [None]
  - DYSPHONIA [None]
